FAERS Safety Report 7125212 (Version 2)
Quarter: 2014Q3

REPORT INFORMATION
  Report Type: Spontaneous
  Country: US (occurrence: None)
  Receive Date: 20090910
  Receipt Date: 20140916
  Transmission Date: 20150326
  Serious: Yes (Hospitalization, Other)
  Sender: FDA-Public Use
  Company Number: 2009S1006966

PATIENT
  Age: 81 Year
  Sex: Female

DRUGS (4)
  1. NEXIUM [Concomitant]
     Active Substance: ESOMEPRAZOLE MAGNESIUM
  2. CHOLESTRYRAMINE [Concomitant]
  3. SIMETHICONE [Concomitant]
     Active Substance: DIMETHICONE\SILICON DIOXIDE\SIMETHICONE
  4. PHOSPHO-SODA [Suspect]
     Active Substance: SODIUM PHOSPHATE, DIBASIC\SODIUM PHOSPHATE, MONOBASIC
     Indication: COLONOSCOPY
     Dosage: TOTAL ORAL
     Route: 048
     Dates: start: 20071115, end: 20071115

REACTIONS (20)
  - Hypertension [None]
  - Pleural effusion [None]
  - Metabolic acidosis [None]
  - Renal tubular necrosis [None]
  - Diarrhoea [None]
  - Anaemia [None]
  - Abdominal pain upper [None]
  - Hypomagnesaemia [None]
  - Hyperthyroidism [None]
  - Nephrogenic anaemia [None]
  - Acute phosphate nephropathy [None]
  - Renal failure chronic [None]
  - Product taste abnormal [None]
  - Ascites [None]
  - Decreased appetite [None]
  - Renal failure acute [None]
  - Nausea [None]
  - Hyperphosphataemia [None]
  - Toxicity to various agents [None]
  - Blood parathyroid hormone increased [None]

NARRATIVE: CASE EVENT DATE: 200711
